FAERS Safety Report 11561651 (Version 1)
Quarter: 2015Q3

REPORT INFORMATION
  Report Type: Spontaneous
  Country: US (occurrence: US)
  Receive Date: 20150916
  Receipt Date: 20150916
  Transmission Date: 20151125
  Serious: No
  Sender: FDA-Public Use
  Company Number: US-ELI_LILLY_AND_COMPANY-US200811001254

PATIENT
  Sex: Female

DRUGS (9)
  1. CITRICAL [Concomitant]
     Active Substance: CALCIUM CITRATE
     Dates: start: 2008
  2. FORTEO [Suspect]
     Active Substance: TERIPARATIDE
     Dates: start: 200806, end: 200810
  3. FORTEO [Suspect]
     Active Substance: TERIPARATIDE
     Dates: start: 2008
  4. CITRICAL [Concomitant]
     Active Substance: CALCIUM CITRATE
     Dosage: 630 MG, EACH EVENING
     Dates: end: 200810
  5. CALTRATE [Concomitant]
     Active Substance: CALCIUM CARBONATE
     Dates: start: 2008
  6. LISIPRIL [Concomitant]
     Indication: HYPERTENSION
  7. CALTRATE [Concomitant]
     Active Substance: CALCIUM CARBONATE
     Dosage: 600 MG, EACH MORNING
     Dates: end: 200810
  8. VITAMIN D [Concomitant]
     Active Substance: CHOLECALCIFEROL
     Dosage: 2000 MG, UNK
  9. HYDROCHLOROTHIAZIDE. [Concomitant]
     Active Substance: HYDROCHLOROTHIAZIDE
     Indication: HYPERTENSION

REACTIONS (7)
  - Vitamin D decreased [Unknown]
  - Pain [Recovered/Resolved]
  - Insomnia [Recovered/Resolved]
  - Pain in extremity [Not Recovered/Not Resolved]
  - Nervousness [Recovered/Resolved]
  - Muscle spasms [Not Recovered/Not Resolved]
  - Depressed mood [Recovered/Resolved]

NARRATIVE: CASE EVENT DATE: 2008
